FAERS Safety Report 8987363 (Version 1)
Quarter: 2012Q4

REPORT INFORMATION
  Report Type: 
  Country: CA (occurrence: CA)
  Receive Date: 20121226
  Receipt Date: 20121226
  Transmission Date: 20130627
  Serious: Yes (Other)
  Sender: FDA-Public Use
  Company Number: CA-ROCHE-GNE302969

PATIENT
  Sex: Female

DRUGS (2)
  1. XOLAIR [Suspect]
     Indication: ASTHMA
     Dosage: 300 mg, 1/Month
     Route: 058
     Dates: start: 20060922
  2. XOLAIR [Suspect]
     Route: 058
     Dates: start: 20060325

REACTIONS (2)
  - Thyroid neoplasm [Unknown]
  - Influenza [Unknown]
